FAERS Safety Report 6589047-7 (Version None)
Quarter: 2010Q1

REPORT INFORMATION
  Report Type: 
  Country: None (occurrence: None)
  Receive Date: 20100218
  Receipt Date: 20100205
  Transmission Date: 20100710
  Serious: Yes (Hospitalization)
  Sender: FDA-Public Use
  Company Number: JP-MERCK-0912USA02519

PATIENT
  Age: 11 Year
  Sex: Male
  Weight: 40 kg

DRUGS (19)
  1. SINGULAIR [Suspect]
     Indication: ASTHMA
     Route: 048
     Dates: start: 20091112, end: 20091116
  2. SINGULAIR [Suspect]
     Route: 048
     Dates: start: 20091102, end: 20091106
  3. CLARITH [Suspect]
     Indication: BRONCHITIS
     Route: 048
     Dates: start: 20091102, end: 20091106
  4. CLARITH [Suspect]
     Route: 048
     Dates: start: 20091112, end: 20091116
  5. CLARITH [Suspect]
     Indication: ASTHMA
     Route: 048
     Dates: start: 20091102, end: 20091106
  6. CLARITH [Suspect]
     Route: 048
     Dates: start: 20091112, end: 20091116
  7. MEDICON [Suspect]
     Indication: BRONCHITIS
     Route: 048
     Dates: start: 20091102, end: 20091106
  8. MEDICON [Suspect]
     Route: 048
     Dates: start: 20091112, end: 20091116
  9. MEDICON [Suspect]
     Indication: COUGH
     Route: 048
     Dates: start: 20091102, end: 20091106
  10. MEDICON [Suspect]
     Route: 048
     Dates: start: 20091112, end: 20091116
  11. HOKUNALIN [Concomitant]
     Indication: BRONCHITIS
     Route: 065
     Dates: start: 20091112, end: 20091116
  12. HOKUNALIN [Concomitant]
     Route: 065
     Dates: start: 20091102, end: 20091106
  13. HOKUNALIN [Concomitant]
     Indication: ASTHMA
     Route: 065
     Dates: start: 20091112, end: 20091116
  14. HOKUNALIN [Concomitant]
     Route: 065
     Dates: start: 20091102, end: 20091106
  15. SULTANOL [Concomitant]
     Indication: BRONCHITIS
     Route: 055
     Dates: start: 20091102
  16. SULTANOL [Concomitant]
     Indication: ASTHMA
     Route: 055
     Dates: start: 20091102
  17. NAUZELIN [Concomitant]
     Indication: NAUSEA
     Route: 054
     Dates: start: 20091113
  18. NAUZELIN [Concomitant]
     Indication: VOMITING
     Route: 054
     Dates: start: 20091113
  19. BIOFERMIN [Concomitant]
     Indication: DIARRHOEA
     Route: 048
     Dates: start: 20091113, end: 20091115

REACTIONS (1)
  - HEPATITIS ACUTE [None]
